FAERS Safety Report 4332397-5 (Version None)
Quarter: 2004Q2

REPORT INFORMATION
  Report Type: 
  Country: None (occurrence: None)
  Receive Date: 20040401
  Receipt Date: 20040324
  Transmission Date: 20050107
  Serious: Yes (Hospitalization)
  Sender: FDA-Public Use
  Company Number: 2004-03-1689

PATIENT
  Age: 71 Year
  Sex: Female

DRUGS (4)
  1. REBETOL [Suspect]
     Indication: HEPATITIS C
     Dosage: 400 MG ORAL
     Route: 048
     Dates: start: 20031027, end: 20040301
  2. . [Concomitant]
  3. INTRON A [Suspect]
     Indication: HEPATITIS C
     Dosage: 3 MIU INTRAMUSCULAR
     Route: 030
     Dates: start: 20031027, end: 20040301
  4. INTRON A [Suspect]

REACTIONS (1)
  - CEREBRAL HAEMORRHAGE [None]
